FAERS Safety Report 17929301 (Version 1)
Quarter: 2020Q2

REPORT INFORMATION
  Report Type: Spontaneous
  Country: US (occurrence: US)
  Receive Date: 20200622
  Receipt Date: 20200622
  Transmission Date: 20200714
  Serious: Yes (Other)
  Sender: FDA-Public Use
  Company Number: None

PATIENT
  Age: 38 Year
  Sex: Female
  Weight: 56.7 kg

DRUGS (1)
  1. SUBOXONE [Suspect]
     Active Substance: BUPRENORPHINE HYDROCHLORIDE\NALOXONE HYDROCHLORIDE
     Indication: DRUG ABUSE
     Route: 048
     Dates: start: 202002

REACTIONS (5)
  - Drug hypersensitivity [None]
  - Weight decreased [None]
  - Headache [None]
  - Feeding disorder [None]
  - Abdominal pain [None]

NARRATIVE: CASE EVENT DATE: 20200609
